FAERS Safety Report 8574584-6 (Version None)
Quarter: 2012Q3

REPORT INFORMATION
  Report Type: 
  Country: None (occurrence: None)
  Receive Date: 20120806
  Receipt Date: 20120724
  Transmission Date: 20120928
  Serious: Yes (Other)
  Sender: FDA-Public Use
  Company Number: GB-MYLANLABS-2012S1015426

PATIENT

DRUGS (1)
  1. AMLODIPINE [Suspect]
     Indication: BLOOD PRESSURE INCREASED

REACTIONS (8)
  - INSOMNIA [None]
  - HEADACHE [None]
  - TINNITUS [None]
  - MEMORY IMPAIRMENT [None]
  - PALPITATIONS [None]
  - MUSCULOSKELETAL STIFFNESS [None]
  - VISUAL ACUITY REDUCED [None]
  - PAIN [None]
